APPROVED DRUG PRODUCT: PENTOXIFYLLINE
Active Ingredient: PENTOXIFYLLINE
Strength: 400MG
Dosage Form/Route: TABLET, EXTENDED RELEASE;ORAL
Application: A074425 | Product #001 | TE Code: AB
Applicant: RISING PHARMA HOLDING INC
Approved: Jul 8, 1997 | RLD: No | RS: No | Type: RX